FAERS Safety Report 8559581-9 (Version None)
Quarter: 2012Q2

REPORT INFORMATION
  Report Type: 
  Country: None (occurrence: None)
  Receive Date: 20120418
  Receipt Date: 20090109
  Transmission Date: 20120825
  Serious: Yes (Life-Threatening)
  Sender: FDA-Public Use
  Company Number: PHEH2009US00663

PATIENT
  Sex: Female

DRUGS (2)
  1. LISINOPRIL [Suspect]
     Dosage: 20 MG
  2. DIOVAN [Suspect]
     Dosage: 80 MG

REACTIONS (2)
  - SINUS DISORDER [None]
  - COUGH [None]
